FAERS Safety Report 16233263 (Version 18)
Quarter: 2022Q3

REPORT INFORMATION
  Report Type: Report from Study
  Country: NL (occurrence: NL)
  Receive Date: 20190424
  Receipt Date: 20220818
  Transmission Date: 20221026
  Serious: Yes (Other)
  Sender: FDA-Public Use
  Company Number: NL-ABBVIE-19S-114-2750681-00

PATIENT
  Sex: Male
  Weight: 86 kg

DRUGS (18)
  1. CARBIDOPA\LEVODOPA [Suspect]
     Active Substance: CARBIDOPA\LEVODOPA
     Indication: Parkinson^s disease
     Dosage: MD: 7.0ML, CD: 3.2ML/H, ED: 1.5ML, REMAINS AT 16 HOURS
     Route: 050
     Dates: start: 20121205
  2. CARBIDOPA\LEVODOPA [Suspect]
     Active Substance: CARBIDOPA\LEVODOPA
     Dosage: MD: 7.0ML, CD: 3.4ML/H, ED: 1.5ML, REMAINS AT 16 HOURS
     Route: 050
  3. CARBIDOPA\LEVODOPA [Suspect]
     Active Substance: CARBIDOPA\LEVODOPA
     Dosage: MD 7.0 CD 3.4 ED 1.5, REMAINS AT 16 HOURS
     Route: 050
  4. CARBIDOPA\LEVODOPA [Suspect]
     Active Substance: CARBIDOPA\LEVODOPA
     Dosage: MD: 5.3ML, CD: 3.4ML/H, ED: 1.5ML
     Route: 050
  5. CARBIDOPA\LEVODOPA [Suspect]
     Active Substance: CARBIDOPA\LEVODOPA
     Dosage: MD: 5.3ML, CD: 3.4ML/H, ED: 1.5ML, END: 1.5ML, CND: 1.7ML/H.
     Route: 050
  6. CARBIDOPA\LEVODOPA [Suspect]
     Active Substance: CARBIDOPA\LEVODOPA
     Dosage: MD 5.8 ML CD 3.4 ML/H ED 1.5 ML
     Route: 050
  7. CARBIDOPA\LEVODOPA [Suspect]
     Active Substance: CARBIDOPA\LEVODOPA
     Dosage: MD: 5.8 ML, CD: 3.1 ML/H, ED: 1.5 ML, END: 1.5 ML, CND: 1.8 ML/H
     Route: 050
  8. CARBIDOPA\LEVODOPA [Suspect]
     Active Substance: CARBIDOPA\LEVODOPA
     Dosage: MD: 5.3 ML, CD: 3.4 ML/H, ED: 1.5 ML, NIGHT PUMP MD:0.0 ML,?END:1.5ML, CND:1.7ML/H
     Route: 050
  9. CARBIDOPA\LEVODOPA [Suspect]
     Active Substance: CARBIDOPA\LEVODOPA
     Route: 050
  10. CARBIDOPA\LEVODOPA [Suspect]
     Active Substance: CARBIDOPA\LEVODOPA
     Dosage: MD: 5.8 ML, CD: 3.1 ML/H, ED: 1.5 ML
     Route: 050
  11. CARBIDOPA\LEVODOPA [Suspect]
     Active Substance: CARBIDOPA\LEVODOPA
     Dosage: MD: 5.8 ML, CD: 3.4 ML/H, ED: 3.0 ML, CND: 1.8 ML/H, END: 1.5ML
     Route: 050
  12. CARBIDOPA\LEVODOPA [Suspect]
     Active Substance: CARBIDOPA\LEVODOPA
     Dosage: CND: 2.1ML/H, END: 2.0ML
     Route: 050
  13. CARBIDOPA\LEVODOPA [Suspect]
     Active Substance: CARBIDOPA\LEVODOPA
     Dosage: MD: 6.3ML. CD: 3.4ML/H, ED: 3.0ML, END: 2.0ML, CND: 2.1ML/H
     Route: 050
  14. BOTOX [Concomitant]
     Active Substance: ONABOTULINUMTOXINA
     Indication: Product used for unknown indication
  15. IRBESARTAN [Concomitant]
     Active Substance: IRBESARTAN
     Indication: Blood pressure measurement
     Dosage: 1 TIME 2 TABLETS
     Route: 048
     Dates: start: 20191104
  16. SYMMETREL [Concomitant]
     Active Substance: AMANTADINE HYDROCHLORIDE
     Indication: Adverse drug reaction
     Dosage: 1 IN THE MORNING
     Route: 048
     Dates: start: 20170901
  17. ESOMEPRAZOLE [Concomitant]
     Active Substance: ESOMEPRAZOLE
     Indication: Prophylaxis
     Dosage: 1 TIME 1 TABLET
     Route: 048
     Dates: start: 20170901
  18. CARBIDOPA\LEVODOPA [Concomitant]
     Active Substance: CARBIDOPA\LEVODOPA
     Indication: Parkinson^s disease
     Dosage: ONE TABLET IN THE EVENING
     Route: 048
     Dates: start: 20170901

REACTIONS (33)
  - Cataract [Not Recovered/Not Resolved]
  - Inflammation [Not Recovered/Not Resolved]
  - Visual impairment [Recovered/Resolved]
  - Fibroma [Recovered/Resolved]
  - Musculoskeletal disorder [Not Recovered/Not Resolved]
  - Device connection issue [Unknown]
  - Faeces hard [Recovered/Resolved]
  - Fibroma [Not Recovered/Not Resolved]
  - Nocturia [Not Recovered/Not Resolved]
  - Tension [Not Recovered/Not Resolved]
  - Terminal insomnia [Recovered/Resolved]
  - Dyschezia [Recovered/Resolved]
  - Gait disturbance [Not Recovered/Not Resolved]
  - Weight increased [Recovered/Resolved]
  - Abnormal dreams [Recovered/Resolved]
  - Fatigue [Not Recovered/Not Resolved]
  - Paraesthesia [Unknown]
  - On and off phenomenon [Recovered/Resolved]
  - Bradykinesia [Not Recovered/Not Resolved]
  - Dyskinesia [Not Recovered/Not Resolved]
  - Muscle rigidity [Not Recovered/Not Resolved]
  - Initial insomnia [Recovered/Resolved]
  - Stoma site discharge [Recovered/Resolved]
  - Stoma site erythema [Recovered/Resolved]
  - Stoma site reaction [Recovered/Resolved]
  - Sleep disorder [Recovered/Resolved]
  - Stoma site inflammation [Unknown]
  - Unevaluable event [Recovered/Resolved]
  - Freezing phenomenon [Recovered/Resolved]
  - Stoma site erythema [Recovered/Resolved]
  - On and off phenomenon [Not Recovered/Not Resolved]
  - Urinary tract infection [Not Recovered/Not Resolved]
  - Stoma site discharge [Unknown]

NARRATIVE: CASE EVENT DATE: 20210101
